FAERS Safety Report 7961616-9 (Version None)
Quarter: 2011Q4

REPORT INFORMATION
  Report Type: 
  Country: None (occurrence: None)
  Receive Date: 20111207
  Receipt Date: 20111125
  Transmission Date: 20120403
  Serious: Yes (Hospitalization, Other)
  Sender: FDA-Public Use
  Company Number: PHHY2011FR103304

PATIENT
  Sex: Female

DRUGS (12)
  1. PLAVIX [Concomitant]
     Dosage: 1 DF, DAILY
  2. STABLON [Suspect]
     Dosage: 2 DF, TID
     Dates: start: 20110801
  3. LAMALINE [Concomitant]
     Dosage: UNK UKN, UNK
  4. DILTIAZEM HCL [Concomitant]
     Dosage: 60 MG, (ONE TABLET IN THE MORNING, ONE TABLET IN THE EVENING),
  5. PREDNISOLONE [Concomitant]
     Dosage: 15 MG, DAILY
  6. ASPIRIN [Concomitant]
     Dosage: 1 DF, DAILY
  7. LANSOPRAZOLE [Concomitant]
     Dosage: 1 DF, IN THE MORNING
  8. LEVOTHYROXINE SODIUM [Concomitant]
     Dosage: 100 L, DAILY
  9. DOMPERIDONE [Concomitant]
     Dosage: 10 MG, TID, THRICE ADAY
  10. IMOVANE [Concomitant]
     Dosage: 1 DF, IN THE EVENING
  11. VALSARTAN [Suspect]
     Dosage: 1 DF, QD (40 MG)
     Route: 048
  12. PROPRANOLOL [Concomitant]
     Dosage: 1 DF, DAILY

REACTIONS (10)
  - C-REACTIVE PROTEIN INCREASED [None]
  - BLOOD CHLORIDE DECREASED [None]
  - CONSTIPATION [None]
  - GASTROINTESTINAL SOUNDS ABNORMAL [None]
  - ABDOMINAL PAIN [None]
  - HYPONATRAEMIA [None]
  - BACK PAIN [None]
  - DEHYDRATION [None]
  - ABDOMINAL DISCOMFORT [None]
  - HAEMATOMA [None]
